FAERS Safety Report 22026632 (Version 3)
Quarter: 2023Q4

REPORT INFORMATION
  Report Type: Spontaneous
  Country: DK (occurrence: DK)
  Receive Date: 20230223
  Receipt Date: 20231222
  Transmission Date: 20240110
  Serious: Yes (Hospitalization, Other)
  Sender: FDA-Public Use
  Company Number: DK-MLMSERVICE-20230208-4095129-1

PATIENT
  Age: 58 Year
  Sex: Male

DRUGS (7)
  1. TACROLIMUS [Suspect]
     Active Substance: TACROLIMUS
     Indication: Immunosuppressant drug therapy
     Dosage: UNK
  2. PREDNISOLONE [Suspect]
     Active Substance: PREDNISOLONE
     Indication: Immunosuppressant drug therapy
     Dosage: 5 MILLIGRAM, QD
     Route: 048
  3. MYCOPHENOLIC ACID [Suspect]
     Active Substance: MYCOPHENOLIC ACID
     Indication: Immunosuppressant drug therapy
     Dosage: UNK
  4. CLOBETASOL PROPIONATE [Suspect]
     Active Substance: CLOBETASOL PROPIONATE
     Indication: Neurodermatitis
     Dosage: 1 DAY, 3-HOUR OCCLUSIONAL TOPICAL STEROIS ON THE ENTIRE BODY EXCEPT THE FACE FOR TWO WEEKS
     Route: 061
  5. CLOBETASOL PROPIONATE [Suspect]
     Active Substance: CLOBETASOL PROPIONATE
     Dosage: 1 DOSAGE FORM, 2 DAY
     Route: 061
  6. CLOBETASOL PROPIONATE [Suspect]
     Active Substance: CLOBETASOL PROPIONATE
     Dosage: 1 DOSAGE FORM, QD
     Route: 061
  7. CLOBETASOL PROPIONATE [Suspect]
     Active Substance: CLOBETASOL PROPIONATE
     Dosage: UNK

REACTIONS (3)
  - Hyperglycaemic hyperosmolar nonketotic syndrome [Recovered/Resolved]
  - Glucose tolerance impaired [Recovered/Resolved]
  - Diabetes mellitus [Recovered/Resolved]
